FAERS Safety Report 22617468 (Version 2)
Quarter: 2024Q3

REPORT INFORMATION
  Report Type: Spontaneous
  Country: JP (occurrence: JP)
  Receive Date: 20230620
  Receipt Date: 20240712
  Transmission Date: 20241017
  Serious: No
  Sender: PIERRE FABRE MEDICAMENT
  Company Number: JP-PFM-2022-04888

PATIENT
  Age: 1 Year
  Sex: Male

DRUGS (13)
  1. PROPRANOLOL HYDROCHLORIDE [Suspect]
     Active Substance: PROPRANOLOL HYDROCHLORIDE
     Indication: Infantile haemangioma
     Dosage: 3 MG/KG, BID (2/DAY)
     Route: 048
  2. PROPRANOLOL HYDROCHLORIDE [Suspect]
     Active Substance: PROPRANOLOL HYDROCHLORIDE
     Dosage: 1 ML/DAY, TWICE DAILY
     Route: 048
  3. PROPRANOLOL HYDROCHLORIDE [Suspect]
     Active Substance: PROPRANOLOL HYDROCHLORIDE
     Dosage: 0.55 MG/KG/DAY, (0.275 MG/KG/12 HOURS)
     Route: 048
     Dates: start: 20220412, end: 20220412
  4. PROPRANOLOL HYDROCHLORIDE [Suspect]
     Active Substance: PROPRANOLOL HYDROCHLORIDE
     Dosage: 1 MG/KG, (0.5 MG/KG/12 HOURS)
     Route: 048
     Dates: start: 20220413, end: 20220414
  5. PROPRANOLOL HYDROCHLORIDE [Suspect]
     Active Substance: PROPRANOLOL HYDROCHLORIDE
     Dosage: 2 MG/KG/DAY, (1.8ML), IN THE MORNING
     Route: 048
     Dates: start: 20220415, end: 20220415
  6. PROPRANOLOL HYDROCHLORIDE [Suspect]
     Active Substance: PROPRANOLOL HYDROCHLORIDE
     Dosage: 1.5 MG/KG/DAY, (1.4ML) AT NIGHT
     Route: 048
     Dates: start: 20220415, end: 20220415
  7. PROPRANOLOL HYDROCHLORIDE [Suspect]
     Active Substance: PROPRANOLOL HYDROCHLORIDE
     Dosage: 1.5 MG/KG/DAY, (0.75 MG/KG/12 HOURS)
     Route: 048
     Dates: start: 20220416, end: 20220424
  8. PROPRANOLOL HYDROCHLORIDE [Suspect]
     Active Substance: PROPRANOLOL HYDROCHLORIDE
     Dosage: 1.5 MG/KG/DAY, (0.75 MG/KG/12 HOURS)
     Route: 048
     Dates: start: 20220425, end: 20220503
  9. PROPRANOLOL HYDROCHLORIDE [Suspect]
     Active Substance: PROPRANOLOL HYDROCHLORIDE
     Dosage: UNK
     Route: 048
     Dates: start: 20220426
  10. PROPRANOLOL HYDROCHLORIDE [Suspect]
     Active Substance: PROPRANOLOL HYDROCHLORIDE
     Dosage: 1.5 MG/KG/DAY, IN THE MORNING
     Route: 048
     Dates: start: 20220504, end: 20220504
  11. PROPRANOLOL HYDROCHLORIDE [Suspect]
     Active Substance: PROPRANOLOL HYDROCHLORIDE
     Dosage: 2.8 MG/KG, BID (2/DAY)
     Route: 048
     Dates: start: 20220506, end: 20220506
  12. PROPRANOLOL HYDROCHLORIDE [Suspect]
     Active Substance: PROPRANOLOL HYDROCHLORIDE
     Dosage: 1 MG/KG/DAY
     Route: 048
     Dates: start: 20220506, end: 20220506
  13. PROPRANOLOL HYDROCHLORIDE [Suspect]
     Active Substance: PROPRANOLOL HYDROCHLORIDE
     Dosage: 1 MG/KG/DAY, (0.5 MG/KG/12 HOURS)
     Route: 048
     Dates: start: 20220507

REACTIONS (1)
  - Decreased appetite [Recovered/Resolved]

NARRATIVE: CASE EVENT DATE: 20220506
